FAERS Safety Report 8417288-2 (Version None)
Quarter: 2012Q2

REPORT INFORMATION
  Report Type: 
  Country: None (occurrence: None)
  Receive Date: 20120606
  Receipt Date: 20120529
  Transmission Date: 20120825
  Serious: Yes (Death, Hospitalization)
  Sender: FDA-Public Use
  Company Number: US-JNJFOC-20110202011

PATIENT
  Sex: Female
  Weight: 52.62 kg

DRUGS (15)
  1. CORTISONE ACETATE [Concomitant]
     Dosage: ^CORTISOL^ LAST DOSE TAKEN 09-DEC-2008
     Route: 048
  2. MORPHINE [Concomitant]
     Dosage: LAST DOSE GIVEN 09-DEC-2008 2100
  3. THYROID TAB [Concomitant]
     Dosage: LAST DOSE TAKEN 09-DEC-2008
     Route: 048
  4. NEURONTIN [Concomitant]
     Dosage: LAST DOSE TAKEN 10-DEC-2008 0700
     Route: 048
  5. LEXAPRO [Concomitant]
     Dosage: LAST DOSE TAKEN 09-DEC-2008
     Route: 048
  6. NORCO [Concomitant]
     Dosage: LAST DOSE TAKEN 10-DEC-2008 0700 10/325 4 TO 5 TIMES DAILY
     Route: 048
  7. FAMOTIDINE [Concomitant]
     Indication: PREMEDICATION
  8. SOLU-CORTEF [Concomitant]
     Indication: PREMEDICATION
  9. REMICADE [Suspect]
     Indication: CROHN'S DISEASE
     Route: 042
     Dates: start: 20070829, end: 20080901
  10. ESTROGEN [Concomitant]
     Dosage: LAST DOSE TAKEN 09-DEC-2008
     Route: 048
  11. WELLBUTRIN [Concomitant]
     Dosage: LAST DOSE TAKEN 09-DEC-2008
     Route: 048
  12. BENADRYL [Concomitant]
     Indication: PREMEDICATION
  13. SYNTHROID [Concomitant]
  14. PROGESTERONE [Concomitant]
     Dosage: LAST DOSE TAKEN 09-DEC-2008
     Route: 048
  15. TESTOSTERONE [Concomitant]
     Dosage: LAST DOSE TAKEN 09-DEC-2008
     Route: 048

REACTIONS (10)
  - KLEBSIELLA INFECTION [None]
  - GANGRENE [None]
  - DISSEMINATED INTRAVASCULAR COAGULATION [None]
  - ABDOMINAL SEPSIS [None]
  - CARDIO-RESPIRATORY ARREST [None]
  - INFUSION RELATED REACTION [None]
  - SMALL INTESTINAL PERFORATION [None]
  - GASTROINTESTINAL HAEMORRHAGE [None]
  - DRUG INEFFECTIVE [None]
  - HYPOXIC-ISCHAEMIC ENCEPHALOPATHY [None]
